FAERS Safety Report 10416186 (Version 5)
Quarter: 2014Q4

REPORT INFORMATION
  Report Type: Spontaneous
  Country: JP (occurrence: JP)
  Receive Date: 20140828
  Receipt Date: 20141017
  Transmission Date: 20150528
  Serious: Yes (Death, Other)
  Sender: FDA-Public Use
  Company Number: JP-PFIZER INC-2014236053

PATIENT
  Age: 63 Year
  Sex: Male
  Weight: 43.5 kg

DRUGS (6)
  1. LYRICA [Suspect]
     Active Substance: PREGABALIN
     Indication: NEURALGIA
     Dosage: 75 MG, 2X/DAY
     Route: 045
     Dates: start: 20140813, end: 20140819
  2. FUROSEMIDE. [Concomitant]
     Active Substance: FUROSEMIDE
     Indication: PLEURAL EFFUSION
     Dosage: 20 MG, 1X/DAY
     Route: 045
     Dates: start: 20140806
  3. CALONAL [Suspect]
     Active Substance: ACETAMINOPHEN
     Indication: PAIN
     Dosage: 600 MG, 3X/DAY
     Route: 045
     Dates: start: 20140812, end: 20140819
  4. NEDAPLATIN [Concomitant]
     Active Substance: NEDAPLATIN
     Indication: OESOPHAGEAL CARCINOMA
     Dosage: 118.56 MG, 1X/DAY
     Route: 042
     Dates: start: 20140728, end: 20140728
  5. PACLITAXEL. [Concomitant]
     Active Substance: PACLITAXEL
     Indication: OESOPHAGEAL CARCINOMA
     Dosage: 259.35 MG, 1X/DAY
     Route: 042
     Dates: start: 20140728, end: 20140728
  6. RACOL [Concomitant]
     Active Substance: AMINO ACIDS\DEXTROSE\ELECTROLYTES NOS
     Indication: PARENTERAL NUTRITION
     Dosage: 1560 ML, UNK
     Route: 045
     Dates: start: 20140805

REACTIONS (5)
  - Intentional product use issue [Unknown]
  - Alanine aminotransferase increased [Recovered/Resolved]
  - Oesophageal carcinoma [Fatal]
  - Drug-induced liver injury [Unknown]
  - Aspartate aminotransferase increased [Recovered/Resolved]

NARRATIVE: CASE EVENT DATE: 20140818
